FAERS Safety Report 17706568 (Version 1)
Quarter: 2020Q2

REPORT INFORMATION
  Report Type: Report from Study
  Country: IE (occurrence: IE)
  Receive Date: 20200424
  Receipt Date: 20200424
  Transmission Date: 20200714
  Serious: Yes (Other)
  Sender: FDA-Public Use
  Company Number: IE-JNJFOC-20200426102

PATIENT
  Age: 65 Year
  Sex: Male

DRUGS (12)
  1. ELTROXIN [Concomitant]
     Active Substance: LEVOTHYROXINE
     Route: 050
  2. NEBIVOLOL HYDROCHLORIDE [Concomitant]
     Active Substance: NEBIVOLOL HYDROCHLORIDE
     Route: 050
  3. STELARA [Suspect]
     Active Substance: USTEKINUMAB
     Indication: PSORIASIS
     Route: 058
     Dates: start: 20170602
  4. EPILIM [Concomitant]
     Active Substance: VALPROATE SODIUM
     Route: 050
  5. PRIADEL                            /00033702/ [Concomitant]
     Active Substance: LITHIUM CARBONATE
     Route: 050
  6. INVEGA [Concomitant]
     Active Substance: PALIPERIDONE
     Route: 050
  7. LANSOPRAZOLE. [Concomitant]
     Active Substance: LANSOPRAZOLE
     Route: 050
  8. OLANZAPIN [Concomitant]
     Active Substance: OLANZAPINE
     Route: 050
  9. DILZEM [Concomitant]
     Active Substance: DILTIAZEM
     Route: 050
  10. NUPRIN                             /00002701/ [Concomitant]
     Route: 050
  11. ATORVASTATIN [Concomitant]
     Active Substance: ATORVASTATIN
     Route: 050
  12. PRIADEL                            /00033702/ [Concomitant]
     Active Substance: LITHIUM CARBONATE
     Route: 050

REACTIONS (1)
  - Diabetes mellitus [Not Recovered/Not Resolved]

NARRATIVE: CASE EVENT DATE: 20200421
